FAERS Safety Report 22228171 (Version 1)
Quarter: 2023Q2

REPORT INFORMATION
  Report Type: Spontaneous
  Country: US (occurrence: US)
  Receive Date: 20230419
  Receipt Date: 20230419
  Transmission Date: 20230722
  Serious: No
  Sender: FDA-Public Use
  Company Number: US-JNJFOC-20190838258

PATIENT
  Age: 85 Year
  Sex: Male
  Weight: 83.990 kg

DRUGS (1)
  1. IMODIUM MULTI-SYMPTOM RELIEF [Suspect]
     Active Substance: DIMETHICONE\LOPERAMIDE HYDROCHLORIDE
     Indication: Diarrhoea
     Dosage: 2 TABLETS AND THEN 1 TWICE 3X A DAY
     Route: 048
     Dates: start: 20190826, end: 20190829

REACTIONS (1)
  - Drug ineffective [Unknown]
